FAERS Safety Report 22528781 (Version 1)
Quarter: 2023Q2

REPORT INFORMATION
  Report Type: Spontaneous
  Country: US (occurrence: US)
  Receive Date: 20230607
  Receipt Date: 20230607
  Transmission Date: 20230721
  Serious: No
  Sender: FDA-Public Use
  Company Number: US-CADILA HEALTHCARE LIMITED-US-ZYDUS-088343

PATIENT

DRUGS (1)
  1. VENLAFAXINE HYDROCHLORIDE [Suspect]
     Active Substance: VENLAFAXINE HYDROCHLORIDE
     Indication: Product used for unknown indication
     Dosage: , UNK
     Route: 065

REACTIONS (5)
  - Withdrawal syndrome [Unknown]
  - Dizziness [Unknown]
  - Disturbance in attention [Unknown]
  - Sleep disorder [Unknown]
  - Nightmare [Unknown]

NARRATIVE: CASE EVENT DATE: 20230101
